FAERS Safety Report 10101813 (Version 1)
Quarter: 2014Q2

REPORT INFORMATION
  Report Type: Spontaneous
  Country: FR (occurrence: FR)
  Receive Date: 20140424
  Receipt Date: 20140424
  Transmission Date: 20141212
  Serious: Yes (Hospitalization)
  Sender: FDA-Public Use
  Company Number: FR-009507513-1404FRA008704

PATIENT
  Age: 11 Year
  Sex: Female

DRUGS (7)
  1. AERIUS [Suspect]
     Indication: PRODUCT USED FOR UNKNOWN INDICATION
     Dosage: 1 DF, QD
     Route: 048
     Dates: start: 20131229, end: 20140103
  2. AERIUS [Suspect]
     Dosage: 1 DF, QD
     Route: 048
     Dates: start: 20140106, end: 20140109
  3. IBUPROFEN [Suspect]
     Indication: JUVENILE IDIOPATHIC ARTHRITIS
     Dosage: 400 MG, QID
     Route: 048
     Dates: start: 20140102, end: 20140109
  4. ROCEPHIN [Suspect]
     Indication: PRODUCT USED FOR UNKNOWN INDICATION
     Dosage: 2 G, UNK
     Route: 042
     Dates: start: 20131227, end: 20140105
  5. RULID [Suspect]
     Indication: PRODUCT USED FOR UNKNOWN INDICATION
     Dosage: UNK
     Dates: start: 20131229, end: 20140111
  6. INEXIUM [Concomitant]
     Indication: PROPHYLAXIS AGAINST GASTROINTESTINAL ULCER
     Dosage: 20 MG, QD
     Route: 048
     Dates: start: 20131227, end: 20131228
  7. INEXIUM [Concomitant]
     Dosage: 20 MG, QD
     Route: 048
     Dates: start: 20140107, end: 20140109

REACTIONS (2)
  - Hepatocellular injury [Recovered/Resolved]
  - Rhabdomyolysis [Recovered/Resolved]
